FAERS Safety Report 9947739 (Version 2)
Quarter: 2014Q1

REPORT INFORMATION
  Report Type: Report from Study
  Country: US (occurrence: US)
  Receive Date: 20140303
  Receipt Date: 20140303
  Transmission Date: 20141002
  Serious: No
  Sender: FDA-Public Use
  Company Number: US-ABBVIE-12P-163-0904132-00

PATIENT
  Age: 27 Year
  Sex: Female

DRUGS (12)
  1. HUMIRA 40 MG/0.8 ML PEN [Suspect]
     Indication: COLITIS ULCERATIVE
     Dosage: 160 LOADING DOSE
     Dates: start: 20120127, end: 20120127
  2. HUMIRA 40 MG/0.8 ML PEN [Suspect]
     Indication: CROHN^S DISEASE
     Dosage: 80 LOADING DOSE
     Dates: start: 20120210, end: 20120210
  3. HUMIRA 40 MG/0.8 ML PEN [Suspect]
  4. PREDNISONE [Concomitant]
     Indication: COLITIS
  5. PREDNISONE [Concomitant]
  6. ZOLOFT [Concomitant]
     Indication: ANXIETY
  7. LOESTRIN [Concomitant]
     Indication: ORAL CONTRACEPTION
     Dosage: DAILY
  8. PROTONIX [Concomitant]
     Indication: GASTROOESOPHAGEAL REFLUX DISEASE
  9. MULTIVITAMIN [Concomitant]
     Indication: PRODUCT USED FOR UNKNOWN INDICATION
     Dosage: DAILY
  10. CALCIUM + VITAMIN D [Concomitant]
     Indication: PRODUCT USED FOR UNKNOWN INDICATION
     Dosage: DAILY
  11. BUSPAR [Concomitant]
     Indication: PRODUCT USED FOR UNKNOWN INDICATION
     Dosage: 20 MG AT NIGHT
  12. ASACOL [Concomitant]
     Indication: PRODUCT USED FOR UNKNOWN INDICATION
     Dosage: 2 - 800MG TWICE DAILY

REACTIONS (7)
  - Vitreous floaters [Not Recovered/Not Resolved]
  - Headache [Not Recovered/Not Resolved]
  - Mouth ulceration [Unknown]
  - Photophobia [Unknown]
  - Photophobia [Not Recovered/Not Resolved]
  - Vitreous floaters [Not Recovered/Not Resolved]
  - Photopsia [Not Recovered/Not Resolved]
